FAERS Safety Report 6310399-7 (Version None)
Quarter: 2009Q3

REPORT INFORMATION
  Report Type: 
  Country: None (occurrence: None)
  Receive Date: 20090814
  Receipt Date: 20090804
  Transmission Date: 20100115
  Serious: Yes (Other)
  Sender: FDA-Public Use
  Company Number: DE-PFIZER INC-2009227358

PATIENT

DRUGS (7)
  1. LYRICA [Suspect]
     Indication: SCIATICA
     Dosage: 150 MG, 2X/DAY
     Route: 048
     Dates: start: 20090609, end: 20090614
  2. ARCOXIA [Concomitant]
  3. METAMIZOLE SODIUM [Concomitant]
     Route: 048
  4. NALOXONE HYDROCHLORIDE/TILIDINE HYDROCHLORIDE [Concomitant]
  5. DICLOFENAC [Concomitant]
  6. CORTISONE [Concomitant]
  7. INDOMETACIN [Concomitant]
     Route: 054

REACTIONS (4)
  - BRAIN NEOPLASM [None]
  - CONFUSIONAL STATE [None]
  - SOMNOLENCE [None]
  - WITHDRAWAL SYNDROME [None]
